FAERS Safety Report 4293673-8 (Version None)
Quarter: 2004Q1

REPORT INFORMATION
  Report Type: 
  Country: None (occurrence: None)
  Receive Date: 20040212
  Receipt Date: 20040206
  Transmission Date: 20041129
  Serious: Yes (Hospitalization)
  Sender: FDA-Public Use
  Company Number: 200411685GDDC

PATIENT
  Age: 44 Year
  Sex: Female

DRUGS (5)
  1. MINIRIN [Suspect]
     Dosage: DOSE: UNK
     Route: 045
  2. CLOZAPINE [Concomitant]
     Indication: MENTAL DISORDER
     Dosage: DOSE: UNK
  3. FLUOXETINE HYDROCHLORIDE [Concomitant]
     Indication: MENTAL DISORDER
     Dosage: DOSE: UNK
     Route: 048
  4. DIXYRAZINE [Concomitant]
     Indication: MENTAL DISORDER
     Dosage: DOSE: UNK
     Route: 048
  5. MEDROXYPROGESTERONE ACETATE [Concomitant]
     Dosage: DOSE: UNK

REACTIONS (1)
  - CEREBRAL INFARCTION [None]
